FAERS Safety Report 4602353-8 (Version None)
Quarter: 2005Q2

REPORT INFORMATION
  Report Type: 
  Country: None (occurrence: None)
  Receive Date: 20050223
  Receipt Date: 20041029
  Transmission Date: 20051028
  Serious: No
  Sender: FDA-Public Use
  Company Number: PHEH2004US10938

PATIENT
  Age: 37 Year
  Sex: Female
  Weight: 72.6 kg

DRUGS (2)
  1. ZELNORM [Suspect]
     Indication: IRRITABLE BOWEL SYNDROME
     Dosage: 6 MG, QD,ORAL
     Route: 048
     Dates: start: 20041011
  2. PEPTO-BISMOL (BISMUTH SUBSALICYLATE) [Suspect]
     Indication: DIARRHOEA
     Dosage: ORAL
     Route: 048
     Dates: start: 20041001

REACTIONS (2)
  - DIARRHOEA [None]
  - TONGUE BLACK HAIRY [None]
